FAERS Safety Report 25764610 (Version 1)
Quarter: 2025Q3

REPORT INFORMATION
  Report Type: Spontaneous
  Country: US (occurrence: US)
  Receive Date: 20250905
  Receipt Date: 20250905
  Transmission Date: 20251021
  Serious: No
  Sender: DOMPE FARMACEUTICI
  Company Number: US-FARMAPROD-202501-0164

PATIENT
  Age: 70 Year
  Sex: Female
  Weight: 61.23 kg

DRUGS (12)
  1. OXERVATE [Suspect]
     Active Substance: CENEGERMIN-BKBJ
     Indication: Neurotrophic keratopathy
     Route: 047
     Dates: start: 20250106
  2. SUMATRIPTAN SUCCINATE [Concomitant]
     Active Substance: SUMATRIPTAN SUCCINATE
  3. GABAPENTIN [Concomitant]
     Active Substance: GABAPENTIN
  4. CEQUA [Concomitant]
     Active Substance: CYCLOSPORINE
  5. SYNTHROID [Concomitant]
     Active Substance: LEVOTHYROXINE SODIUM
  6. HYDROXYCHLOROQUINE SULFATE [Concomitant]
     Active Substance: HYDROXYCHLOROQUINE SULFATE
  7. ACYCLOVIR [Concomitant]
     Active Substance: ACYCLOVIR
  8. BUPROPION [Concomitant]
     Active Substance: BUPROPION
  9. EMGALITY [Concomitant]
     Active Substance: GALCANEZUMAB-GNLM
  10. CLONAZEPAM [Concomitant]
     Active Substance: CLONAZEPAM
  11. VALACYCLOVIR [Concomitant]
     Active Substance: VALACYCLOVIR HYDROCHLORIDE
  12. NITROFURANTOIN [Concomitant]
     Active Substance: NITROFURANTOIN

REACTIONS (6)
  - Periorbital pain [Unknown]
  - Eyelid pain [Unknown]
  - Foreign body sensation in eyes [Unknown]
  - Eye irritation [Unknown]
  - Headache [Unknown]
  - Migraine [Unknown]

NARRATIVE: CASE EVENT DATE: 20250113
